FAERS Safety Report 16822614 (Version 2)
Quarter: 2019Q4

REPORT INFORMATION
  Report Type: Spontaneous
  Country: US (occurrence: US)
  Receive Date: 20190918
  Receipt Date: 20191023
  Transmission Date: 20200122
  Serious: No
  Sender: FDA-Public Use
  Company Number: US-PFIZER INC-2019402563

PATIENT
  Age: 51 Year
  Sex: Female

DRUGS (5)
  1. LYRICA [Suspect]
     Active Substance: PREGABALIN
     Dosage: UNK, 1 CAPSULE IN MORNING AND 3 CAPSULES EVERY NIGHT AT BEDTIME (25 MG CAPSULE), AS DIRECTED
  2. LYRICA [Suspect]
     Active Substance: PREGABALIN
     Dosage: UNK, 2X/DAY
  3. LYRICA [Suspect]
     Active Substance: PREGABALIN
     Dosage: 75 MG, 2X/DAY (75 MG CAPSULE)
  4. LYRICA [Suspect]
     Active Substance: PREGABALIN
     Dosage: UNK, 2 CAPSULES OF 25 MG IN MORNING AND 75 MG IN EVENING
  5. GABAPENTIN. [Suspect]
     Active Substance: GABAPENTIN
     Indication: GLOSSITIS
     Dosage: 300 MG, 3X/DAY

REACTIONS (3)
  - Off label use [Unknown]
  - Drug ineffective for unapproved indication [Unknown]
  - Fatigue [Unknown]

NARRATIVE: CASE EVENT DATE: 20150518
